FAERS Safety Report 7183251-5 (Version None)
Quarter: 2010Q4

REPORT INFORMATION
  Report Type: 
  Country: None (occurrence: None)
  Receive Date: 20101222
  Receipt Date: 20100607
  Transmission Date: 20110411
  Serious: No
  Sender: FDA-Public Use
  Company Number: A0856340A

PATIENT
  Age: 50 Year
  Sex: Female

DRUGS (5)
  1. FLONASE [Suspect]
     Dosage: 2SPR PER DAY
     Route: 045
     Dates: start: 20100304, end: 20100306
  2. CLARINEX [Concomitant]
  3. THYROID TAB [Concomitant]
  4. TENEX [Concomitant]
  5. GEODON [Concomitant]

REACTIONS (2)
  - NASAL SEPTUM ULCERATION [None]
  - RHINALGIA [None]
